FAERS Safety Report 12584605 (Version 5)
Quarter: 2022Q2

REPORT INFORMATION
  Report Type: Spontaneous
  Country: FR (occurrence: FR)
  Receive Date: 20160722
  Receipt Date: 20220503
  Transmission Date: 20220721
  Serious: Yes (Death, Life-Threatening, Hospitalization, Other)
  Sender: FDA-Public Use
  Company Number: FR-SA-2016SA121255

PATIENT
  Age: 87 Year
  Sex: Female
  Weight: 68 kg

DRUGS (54)
  1. LOVENOX [Suspect]
     Active Substance: ENOXAPARIN SODIUM
     Indication: Atrial fibrillation
     Dosage: 0.7 ML AT 15:00 AND AT 21:00 0.7 ML BID 0.6 ML
     Route: 051
     Dates: start: 20120606, end: 20120606
  2. LOVENOX [Suspect]
     Active Substance: ENOXAPARIN SODIUM
     Indication: Thrombosis prophylaxis
     Dosage: UNK
     Route: 051
     Dates: start: 201206, end: 201206
  3. LOVENOX [Suspect]
     Active Substance: ENOXAPARIN SODIUM
     Indication: Prophylaxis
     Dosage: 0.6 ML
     Route: 051
     Dates: start: 20120608, end: 20120613
  4. LOVENOX [Suspect]
     Active Substance: ENOXAPARIN SODIUM
  5. LOVENOX [Suspect]
     Active Substance: ENOXAPARIN SODIUM
     Dosage: 0.7 ML
     Dates: start: 20120606
  6. LOVENOX [Suspect]
     Active Substance: ENOXAPARIN SODIUM
     Dosage: 0.8 ML
     Route: 065
     Dates: start: 20120608, end: 20120613
  7. KARDEGIC [Concomitant]
     Active Substance: ASPIRIN DL-LYSINE
     Indication: Aortic valve disease
     Dosage: 1 DF,QD
     Route: 048
     Dates: start: 20120525, end: 20120608
  8. KARDEGIC [Concomitant]
     Active Substance: ASPIRIN DL-LYSINE
     Dosage: 75
  9. CORDARONE [Concomitant]
     Active Substance: AMIODARONE HYDROCHLORIDE
     Dosage: 1 DF,QD
     Route: 048
     Dates: start: 20120601, end: 20120609
  10. METHYLPREDNISOLONE [Concomitant]
     Active Substance: METHYLPREDNISOLONE
     Dosage: 3 DF,QD
     Route: 065
     Dates: start: 20120525, end: 20120609
  11. VALSARTAN [Concomitant]
     Active Substance: VALSARTAN
     Dosage: 1 DF,QD
     Route: 065
     Dates: start: 20120525, end: 20120613
  12. DILTIAZEM HYDROCHLORIDE [Concomitant]
     Active Substance: DILTIAZEM HYDROCHLORIDE
     Dosage: 1 DF,QD
     Route: 065
     Dates: start: 20120525, end: 20120613
  13. FUROSEMIDE [Concomitant]
     Active Substance: FUROSEMIDE
     Dosage: 2 DF,QD
     Route: 065
     Dates: start: 20120525, end: 20120531
  14. FUROSEMIDE [Concomitant]
     Active Substance: FUROSEMIDE
     Dosage: 1 DF,QD
     Route: 065
     Dates: start: 20120601, end: 20120602
  15. FUROSEMIDE [Concomitant]
     Active Substance: FUROSEMIDE
     Dosage: .5 DF,QD
     Route: 065
     Dates: start: 20120603, end: 20120603
  16. FUROSEMIDE [Concomitant]
     Active Substance: FUROSEMIDE
     Dosage: 1 DF,QD
     Route: 065
     Dates: start: 20120604, end: 20120606
  17. FUROSEMIDE [Concomitant]
     Active Substance: FUROSEMIDE
     Dosage: 1 DF,BID
     Route: 065
     Dates: start: 20120607, end: 20120607
  18. FUROSEMIDE [Concomitant]
     Active Substance: FUROSEMIDE
     Dosage: 1.5 DF,QD
     Route: 065
     Dates: start: 20120608, end: 20120609
  19. FUROSEMIDE [Concomitant]
     Active Substance: FUROSEMIDE
     Dosage: .5 DF,QD
     Route: 065
     Dates: start: 20120612, end: 20120613
  20. FUROSEMIDE [Concomitant]
     Active Substance: FUROSEMIDE
     Dosage: 40
  21. LEVOTHYROXINE [Concomitant]
     Active Substance: LEVOTHYROXINE
     Dosage: 2 DF,QD
     Route: 065
     Dates: start: 20120525, end: 20120619
  22. REQUIP [Concomitant]
     Active Substance: ROPINIROLE HYDROCHLORIDE
     Dosage: 1 DF,QD
     Route: 065
     Dates: start: 20120525, end: 20120612
  23. REQUIP [Concomitant]
     Active Substance: ROPINIROLE HYDROCHLORIDE
     Dosage: 0.25
  24. SERETIDE [Concomitant]
     Active Substance: FLUTICASONE PROPIONATE\SALMETEROL XINAFOATE
     Dosage: 500 MG,BID
     Route: 065
     Dates: start: 20120525, end: 20120607
  25. SERETIDE [Concomitant]
     Active Substance: FLUTICASONE PROPIONATE\SALMETEROL XINAFOATE
     Dosage: 500 MG,BID
     Route: 065
     Dates: start: 20120608, end: 20120608
  26. SERETIDE [Concomitant]
     Active Substance: FLUTICASONE PROPIONATE\SALMETEROL XINAFOATE
     Dosage: 500 MG,QD
     Route: 065
     Dates: start: 20120609, end: 20120609
  27. EUPANTOL [Concomitant]
     Active Substance: PANTOPRAZOLE SODIUM
     Dosage: 1 DF,QD
     Route: 065
     Dates: start: 20120525, end: 20120607
  28. EUPANTOL [Concomitant]
     Active Substance: PANTOPRAZOLE SODIUM
     Dosage: 20
  29. ESCITALOPRAM OXALATE [Concomitant]
     Active Substance: ESCITALOPRAM OXALATE
     Dosage: 1 DF,QD
     Route: 065
     Dates: start: 20120525, end: 20120609
  30. TRAMADOL HYDROCHLORIDE [Concomitant]
     Active Substance: TRAMADOL HYDROCHLORIDE
     Dosage: 1 DF,BID
     Route: 065
     Dates: start: 20120525, end: 20120604
  31. TRAMADOL HYDROCHLORIDE [Concomitant]
     Active Substance: TRAMADOL HYDROCHLORIDE
     Dosage: 150 MG,BID
     Route: 065
     Dates: start: 20120604, end: 20120606
  32. DOLIPRANE [Concomitant]
     Active Substance: ACETAMINOPHEN
     Dosage: 1 DF,TID
     Route: 065
     Dates: start: 20120525, end: 20120601
  33. LORATADINE [Concomitant]
     Active Substance: LORATADINE
     Dosage: 1 DF,QD
     Route: 065
     Dates: start: 20120525, end: 20120607
  34. XANAX [Concomitant]
     Active Substance: ALPRAZOLAM
     Dosage: .5 DF,QD
     Route: 065
     Dates: start: 20120525, end: 20120609
  35. XANAX [Concomitant]
     Active Substance: ALPRAZOLAM
     Dosage: 0.25 1 AT 22H00
  36. PRISTINAMYCIN [Concomitant]
     Active Substance: PRISTINAMYCIN
     Dosage: 2 DF,BID
     Route: 065
     Dates: start: 20120530, end: 20120603
  37. ZALDIAR [Concomitant]
     Active Substance: ACETAMINOPHEN\TRAMADOL HYDROCHLORIDE
     Dosage: 1 DF,BID
     Route: 065
     Dates: start: 20120602, end: 20120603
  38. ZALDIAR [Concomitant]
     Active Substance: ACETAMINOPHEN\TRAMADOL HYDROCHLORIDE
     Dosage: 1 DF,BID
     Route: 065
     Dates: start: 20120606, end: 20120608
  39. CEFIXIME [Concomitant]
     Active Substance: CEFIXIME
     Dosage: 1 DF,BID
     Route: 065
     Dates: start: 20120606, end: 20120613
  40. CEFIXIME [Concomitant]
     Active Substance: CEFIXIME
  41. CIPROFLOXACIN [Concomitant]
     Active Substance: CIPROFLOXACIN
     Dosage: 1 DF,BID
     Route: 065
     Dates: start: 20120606, end: 20120613
  42. AMBROXOL HYDROCHLORIDE [Concomitant]
     Active Substance: AMBROXOL HYDROCHLORIDE
     Dosage: 2 DF,BID
     Route: 065
     Dates: start: 20120608, end: 20120612
  43. AMBROXOL HYDROCHLORIDE [Concomitant]
     Active Substance: AMBROXOL HYDROCHLORIDE
     Dosage: 1 DF,QD
     Route: 065
     Dates: start: 20120613, end: 20120614
  44. POLYETHYLENE GLYCOL 4000 [Concomitant]
     Active Substance: POLYETHYLENE GLYCOL 4000
     Dosage: 1 DF,QD
     Route: 065
     Dates: start: 20120608, end: 20120608
  45. DURETIC [Concomitant]
  46. FUROSEMIDE SODIUM [Concomitant]
     Active Substance: FUROSEMIDE SODIUM
     Route: 048
  47. VALSARTAN [Concomitant]
     Active Substance: VALSARTAN
     Dosage: 160
  48. DILTIAZEM [Concomitant]
     Active Substance: DILTIAZEM
     Dosage: 200
  49. SEROPRAM (CITALOPRAM HYDROBROMIDE) [Concomitant]
     Active Substance: CITALOPRAM HYDROBROMIDE
     Dosage: 20
  50. AMIODARONE [Concomitant]
     Active Substance: AMIODARONE
  51. AMIODARONE [Concomitant]
     Active Substance: AMIODARONE
  52. ACETAMINOPHEN [Concomitant]
     Active Substance: ACETAMINOPHEN
     Dosage: 2 3 TIMES A DAY
  53. TRAMADOL [Concomitant]
     Active Substance: TRAMADOL
  54. FUROSEMIDE [Concomitant]
     Active Substance: FUROSEMIDE

REACTIONS (70)
  - Creatinine renal clearance decreased [Fatal]
  - Haemoglobin decreased [Fatal]
  - Shock haemorrhagic [Fatal]
  - Organ failure [Fatal]
  - Abdominal distension [Fatal]
  - Abdominal pain upper [Fatal]
  - Dehydration [Fatal]
  - Cardiac failure [Fatal]
  - Urinary tract disorder [Fatal]
  - Arthritis [Fatal]
  - Oedema [Fatal]
  - Dyspnoea exertional [Fatal]
  - Arthralgia [Fatal]
  - Palpitations [Fatal]
  - Dyspnoea [Fatal]
  - Erythema [Fatal]
  - Pain [Fatal]
  - Cough [Fatal]
  - Headache [Fatal]
  - Bronchitis [Fatal]
  - Lymphopenia [Fatal]
  - Malnutrition [Fatal]
  - Lung disorder [Fatal]
  - Osteoarthritis [Fatal]
  - Wheezing [Fatal]
  - Pulmonary congestion [Fatal]
  - Abdominal pain [Fatal]
  - Abdominal distension [Fatal]
  - Fall [Fatal]
  - Malaise [Fatal]
  - Vomiting [Fatal]
  - Bradycardia [Fatal]
  - Cardiac arrest [Fatal]
  - Weight increased [Fatal]
  - Hypertension [Fatal]
  - Pain in extremity [Fatal]
  - Motor dysfunction [Fatal]
  - Atrial fibrillation [Fatal]
  - Dehydration [Fatal]
  - Cardiac failure congestive [Fatal]
  - Blood urea increased [Fatal]
  - Haematoma [Fatal]
  - Haematoma [Fatal]
  - Haematoma muscle [Fatal]
  - Haemorrhage [Fatal]
  - Gastrointestinal haemorrhage [Fatal]
  - Melaena [Fatal]
  - Chest wall haematoma [Fatal]
  - Haematemesis [Fatal]
  - Haematoma [Fatal]
  - Haemorrhage [Fatal]
  - Bronchospasm [Fatal]
  - Cardio-respiratory arrest [Fatal]
  - Chronic respiratory failure [Unknown]
  - Bronchospasm [Unknown]
  - Oedema peripheral [Unknown]
  - Dyspnoea exertional [Unknown]
  - Temporomandibular joint syndrome [Unknown]
  - Mobility decreased [Unknown]
  - Pericardial effusion [Unknown]
  - Systolic hypertension [Unknown]
  - Respiratory fremitus [Unknown]
  - Hepatojugular reflux [Unknown]
  - Chest pain [Unknown]
  - Ear pain [Unknown]
  - Gastrointestinal haemorrhage [Unknown]
  - Haematoma [Not Recovered/Not Resolved]
  - Cough [Unknown]
  - Product use in unapproved indication [Unknown]
  - Inappropriate schedule of product administration [Unknown]

NARRATIVE: CASE EVENT DATE: 20120601
